FAERS Safety Report 4467035-4 (Version None)
Quarter: 2004Q4

REPORT INFORMATION
  Report Type: 
  Country: None (occurrence: None)
  Receive Date: 20041004
  Receipt Date: 20040921
  Transmission Date: 20050328
  Serious: Yes (Other)
  Sender: FDA-Public Use
  Company Number: 2004069511

PATIENT
  Sex: Male

DRUGS (1)
  1. ZOLOFT [Suspect]
     Indication: MENTAL DISORDER
     Dosage: 100 MG (100 MG, 1 IN1 D), ORAL
     Route: 048

REACTIONS (13)
  - ANGER [None]
  - AUTISM [None]
  - DRUG EXPOSURE DURING PREGNANCY [None]
  - DRUG EXPOSURE VIA BREAST MILK [None]
  - DYSPNOEA [None]
  - FEELING ABNORMAL [None]
  - GROWTH RETARDATION [None]
  - HYPERSENSITIVITY [None]
  - MENTAL RETARDATION SEVERITY UNSPECIFIED [None]
  - MENTALLY LATE DEVELOPER [None]
  - MOVEMENT DISORDER [None]
  - NASOPHARYNGITIS [None]
  - NEONATAL DISORDER [None]
